FAERS Safety Report 6252616-8 (Version None)
Quarter: 2009Q3

REPORT INFORMATION
  Report Type: 
  Country: None (occurrence: None)
  Receive Date: 20090701
  Receipt Date: 20090624
  Transmission Date: 20100115
  Serious: Yes (Hospitalization)
  Sender: FDA-Public Use
  Company Number: US-ROCHE-640493

PATIENT
  Age: 78 Year
  Sex: Female

DRUGS (8)
  1. BONIVA [Suspect]
     Indication: OSTEOPOROSIS
     Route: 048
     Dates: start: 20090515
  2. MIRTAZAPINE [Concomitant]
  3. SIMVASTATIN [Concomitant]
  4. NORTRIPTYLINE HCL [Concomitant]
  5. METFORMIN [Concomitant]
  6. LAMICTAL [Concomitant]
  7. ATACAND [Concomitant]
  8. JANUVIA [Concomitant]

REACTIONS (3)
  - ARTHRALGIA [None]
  - DEPRESSION [None]
  - WEIGHT DECREASED [None]
